FAERS Safety Report 18231653 (Version 1)
Quarter: 2020Q3

REPORT INFORMATION
  Report Type: Spontaneous
  Country: BR (occurrence: BR)
  Receive Date: 20200904
  Receipt Date: 20200904
  Transmission Date: 20201103
  Serious: Yes (Other)
  Sender: FDA-Public Use
  Company Number: NVSC2020BR240702

PATIENT
  Sex: Female

DRUGS (1)
  1. EXELON [Suspect]
     Active Substance: RIVASTIGMINE TARTRATE
     Indication: PRODUCT USED FOR UNKNOWN INDICATION
     Dosage: UNK (PATCH 5 (CM2) OR CONTAINS BASE LOADED WITH 9 MG RIVASTIGMINE / DAILY)
     Route: 062

REACTIONS (3)
  - Loss of consciousness [Unknown]
  - Malaise [Unknown]
  - Drug resistance [Unknown]
